FAERS Safety Report 15101495 (Version 1)
Quarter: 2018Q3

REPORT INFORMATION
  Report Type: Spontaneous
  Country: BR (occurrence: BR)
  Receive Date: 20180703
  Receipt Date: 20180703
  Transmission Date: 20181010
  Serious: Yes (Hospitalization)
  Sender: FDA-Public Use
  Company Number: BR-GLAXOSMITHKLINE-BR2018GSK115613

PATIENT
  Sex: Male
  Weight: 24 kg

DRUGS (1)
  1. ZINNAT [Suspect]
     Active Substance: CEFUROXIME AXETIL
     Indication: PHARYNGITIS
     Dosage: 5 ML, BID
     Route: 048
     Dates: end: 20180622

REACTIONS (4)
  - Dehydration [Unknown]
  - Drug prescribing error [Recovered/Resolved]
  - Overdose [Recovered/Resolved]
  - Vomiting [Unknown]
